FAERS Safety Report 23030030 (Version 1)
Quarter: 2023Q4

REPORT INFORMATION
  Report Type: Spontaneous
  Country: US (occurrence: US)
  Receive Date: 20231005
  Receipt Date: 20231005
  Transmission Date: 20240110
  Serious: No
  Sender: FDA-Public Use
  Company Number: US-AMGEN-USASP2023173747

PATIENT

DRUGS (1)
  1. PROLIA [Suspect]
     Active Substance: DENOSUMAB
     Indication: Osteoporosis
     Dosage: UNK
     Route: 065
     Dates: start: 202002

REACTIONS (15)
  - Osteoarthritis [Unknown]
  - Gastrooesophageal reflux disease [Unknown]
  - Blister [Unknown]
  - Skin exfoliation [Unknown]
  - Back pain [Unknown]
  - Groin pain [Unknown]
  - Arthralgia [Unknown]
  - Alopecia [Unknown]
  - Constipation [Unknown]
  - Weight increased [Unknown]
  - Blood parathyroid hormone increased [Unknown]
  - Blood cholesterol increased [Unknown]
  - Vitamin B complex deficiency [Unknown]
  - Depression [Unknown]
  - Mood swings [Unknown]

NARRATIVE: CASE EVENT DATE: 20200101
